FAERS Safety Report 5070122-3 (Version None)
Quarter: 2006Q3

REPORT INFORMATION
  Report Type: 
  Country: None (occurrence: None)
  Receive Date: 20060803
  Receipt Date: 20060717
  Transmission Date: 20061208
  Serious: Yes (Death, Hospitalization)
  Sender: FDA-Public Use
  Company Number: TR-NOVOPROD-255114

PATIENT
  Age: 67 Year
  Sex: Male

DRUGS (2)
  1. NOVOSEVEN [Suspect]
     Indication: HAEMORRHAGE CONTROL
     Dosage: 7.2 MG, SINGLE
     Route: 042
     Dates: start: 20060706, end: 20060706
  2. FRESH FROZEN PLASMA [Concomitant]
     Dosage: 30 U, TOTAL
     Dates: start: 20060627, end: 20060708

REACTIONS (1)
  - SHOCK HAEMORRHAGIC [None]
